FAERS Safety Report 5551018-7 (Version None)
Quarter: 2007Q4

REPORT INFORMATION
  Report Type: 
  Country: None (occurrence: None)
  Receive Date: 20071210
  Receipt Date: 20071128
  Transmission Date: 20080405
  Serious: Yes (Other)
  Sender: FDA-Public Use
  Company Number: MPS1-10789

PATIENT
  Age: 14 Year
  Sex: Female
  Weight: 26.7 kg

DRUGS (1)
  1. ALDURAZYME [Suspect]
     Indication: MUCOPOLYSACCHARIDOSIS I
     Dosage: 2600 UNITS IV
     Route: 042
     Dates: start: 20071127

REACTIONS (1)
  - EXTRAVASATION [None]
